FAERS Safety Report 20505591 (Version 2)
Quarter: 2022Q1

REPORT INFORMATION
  Report Type: Report from Study
  Country: PL (occurrence: PL)
  Receive Date: 20220223
  Receipt Date: 20220302
  Transmission Date: 20220423
  Serious: Yes (Death, Life-Threatening, Other)
  Sender: FDA-Public Use
  Company Number: PL-BRISTOL-MYERS SQUIBB COMPANY-BMS-2021-145005

PATIENT
  Age: 44 Year
  Sex: Female

DRUGS (10)
  1. NIVOLUMAB [Suspect]
     Active Substance: NIVOLUMAB
     Indication: Non-Hodgkin^s lymphoma
     Dosage: 240 MILLIGRAM, QCYCLE
     Route: 042
     Dates: start: 20210519, end: 20210908
  2. GEMCITABINE HYDROCHLORIDE [Suspect]
     Active Substance: GEMCITABINE HYDROCHLORIDE
     Indication: Non-Hodgkin^s lymphoma
     Dosage: 1773 MILLIGRAM, 1XC
     Route: 042
     Dates: start: 20210521, end: 20210910
  3. OXALIPLATIN [Suspect]
     Active Substance: OXALIPLATIN
     Indication: Non-Hodgkin^s lymphoma
     Dosage: 177 MILLIGRAM- 1X C
     Route: 042
     Dates: start: 20210521, end: 20210910
  4. RITUXIMAB [Suspect]
     Active Substance: RITUXIMAB
     Indication: Non-Hodgkin^s lymphoma
     Dosage: 66 MILLIGRAM, 1XC
     Route: 042
     Dates: start: 20210520, end: 20210909
  5. FILGRASTIM [Suspect]
     Active Substance: FILGRASTIM
     Indication: Non-Hodgkin^s lymphoma
     Dosage: 48 UNIT NOT SPECIFIED, 1XC
     Route: 058
     Dates: start: 20210606, end: 20210917
  6. MEROPENEM [Concomitant]
     Active Substance: MEROPENEM
     Indication: C-reactive protein increased
     Dosage: 1 GRAM, TID
     Route: 042
     Dates: start: 20211117, end: 20211202
  7. ACYCLOVIR [Concomitant]
     Active Substance: ACYCLOVIR
     Indication: Herpes virus infection
     Dosage: 400 MILLIGRAM, BID
     Route: 048
     Dates: start: 20210504
  8. HYDROXYZINE HYDROCHLORIDE [Concomitant]
     Active Substance: HYDROXYZINE HYDROCHLORIDE
     Indication: Insomnia
     Dosage: 10 MILLIGRAM, QD
     Route: 048
     Dates: start: 20210505
  9. ESCITALOPRAM [Concomitant]
     Active Substance: ESCITALOPRAM OXALATE
     Indication: Depression
     Dosage: 10 MILLIGRAM, QD
     Route: 048
     Dates: start: 20210506
  10. SOLU-MEDROL [Concomitant]
     Active Substance: METHYLPREDNISOLONE SODIUM SUCCINATE
     Indication: Hepatitis
     Dosage: UNK
     Route: 065
     Dates: start: 20211122

REACTIONS (3)
  - Multiple organ dysfunction syndrome [Fatal]
  - Clostridium difficile infection [Recovering/Resolving]
  - Fungal infection [Recovering/Resolving]

NARRATIVE: CASE EVENT DATE: 20211119
